FAERS Safety Report 6344425-6 (Version None)
Quarter: 2009Q3

REPORT INFORMATION
  Report Type: 
  Country: None (occurrence: None)
  Receive Date: 20090908
  Receipt Date: 20090831
  Transmission Date: 20100115
  Serious: Yes (Other)
  Sender: FDA-Public Use
  Company Number: PHHY2009AU34309

PATIENT
  Sex: Female

DRUGS (2)
  1. EXELON [Suspect]
     Indication: DEMENTIA ALZHEIMER'S TYPE
     Dosage: UNK
     Route: 062
     Dates: start: 20090727, end: 20090810
  2. EXELON [Suspect]
     Dosage: UNK
     Route: 062
     Dates: start: 20090817

REACTIONS (3)
  - DIARRHOEA [None]
  - SPEECH DISORDER [None]
  - TREMOR [None]
